FAERS Safety Report 5321977-6 (Version None)
Quarter: 2007Q2

REPORT INFORMATION
  Report Type: 
  Country: None (occurrence: None)
  Receive Date: 20070511
  Receipt Date: 20070502
  Transmission Date: 20071010
  Serious: Yes (Other)
  Sender: FDA-Public Use
  Company Number: PHEH2007US04420

PATIENT
  Age: 51 Year
  Sex: Female
  Weight: 63.492 kg

DRUGS (16)
  1. ZELNORM [Suspect]
     Indication: IMPAIRED GASTRIC EMPTYING
     Dosage: 6 MG, BID
     Route: 048
     Dates: start: 20061127, end: 20070403
  2. ZOCOR [Concomitant]
  3. ANTIDIABETICS [Concomitant]
  4. IMDUR [Concomitant]
  5. COUMADIN [Concomitant]
  6. SINGULAIR [Concomitant]
  7. ADVAIR DISKUS 100/50 [Concomitant]
  8. AMBIEN [Concomitant]
  9. ALPRAZOLAM [Concomitant]
  10. WELLBATRIN [Concomitant]
  11. TRAZODONE HCL [Concomitant]
     Dates: start: 20050927
  12. LANTUS [Concomitant]
     Dosage: UNK, UNK
     Dates: start: 20050927
  13. NEXIUM [Concomitant]
     Dosage: UNK, UNK
     Dates: start: 20050927
  14. VALTREX [Concomitant]
     Dates: start: 20070312
  15. HUMALOG [Concomitant]
  16. ISOSORBIDE [Concomitant]
     Dates: start: 20070312

REACTIONS (28)
  - BLINDNESS [None]
  - BLOOD ALKALINE PHOSPHATASE INCREASED [None]
  - BLOOD GLUCOSE INCREASED [None]
  - BLOOD PRESSURE INCREASED [None]
  - BLOOD TRIGLYCERIDES INCREASED [None]
  - CARBON DIOXIDE INCREASED [None]
  - CARDIAC ANEURYSM [None]
  - CAROTID ARTERY STENOSIS [None]
  - CEREBRAL ISCHAEMIA [None]
  - CEREBROVASCULAR ACCIDENT [None]
  - COMPUTERISED TOMOGRAM ABNORMAL [None]
  - DIPLOPIA [None]
  - ECHOCARDIOGRAM ABNORMAL [None]
  - GLYCOSYLATED HAEMOGLOBIN INCREASED [None]
  - HEMIPARESIS [None]
  - INTERMEDIATE DENSITY LIPOPROTEIN INCREASED [None]
  - INTERNATIONAL NORMALISED RATIO DECREASED [None]
  - INTERNATIONAL NORMALISED RATIO INCREASED [None]
  - INTERVERTEBRAL DISC PROTRUSION [None]
  - MITRAL VALVE INCOMPETENCE [None]
  - NUCLEAR MAGNETIC RESONANCE IMAGING BRAIN ABNORMAL [None]
  - PROTHROMBIN TIME PROLONGED [None]
  - PULMONARY VALVE INCOMPETENCE [None]
  - SPEECH DISORDER [None]
  - TRICUSPID VALVE INCOMPETENCE [None]
  - ULTRASOUND DOPPLER ABNORMAL [None]
  - VERY LOW DENSITY LIPOPROTEIN INCREASED [None]
  - WALKING AID USER [None]
